FAERS Safety Report 18565032 (Version 1)
Quarter: 2020Q4

REPORT INFORMATION
  Report Type: Spontaneous
  Country: IN (occurrence: IN)
  Receive Date: 20201201
  Receipt Date: 20201201
  Transmission Date: 20210114
  Serious: Yes (Hospitalization)
  Sender: FDA-Public Use
  Company Number: IN-MYLANLABS-2020M1097829

PATIENT
  Age: 55 Year
  Sex: Female

DRUGS (6)
  1. FLUOROURACIL. [Suspect]
     Active Substance: FLUOROURACIL
     Indication: OESOPHAGEAL SQUAMOUS CELL CARCINOMA
     Dosage: FOR 1ST AND 2ND CYCLE; ON ALL DAYS.
     Route: 042
  2. FLUOROURACIL. [Suspect]
     Active Substance: FLUOROURACIL
     Dosage: 1400 MILLIGRAM FOR 3RD CYCLE...
     Route: 042
  3. CISPLATIN. [Concomitant]
     Active Substance: CISPLATIN
     Indication: OESOPHAGEAL SQUAMOUS CELL CARCINOMA
     Dosage: FOR 1ST AND 2ND CYCLE..
     Route: 042
  4. DOCETAXEL. [Concomitant]
     Active Substance: DOCETAXEL
     Indication: OESOPHAGEAL SQUAMOUS CELL CARCINOMA
     Dosage: FOR 1ST AND 2ND CYCLE...
     Route: 042
  5. DOCETAXEL. [Concomitant]
     Active Substance: DOCETAXEL
     Dosage: 140 MILLIGRAM FOR 3RD CYCLE...
     Route: 042
  6. CISPLATIN. [Concomitant]
     Active Substance: CISPLATIN
     Dosage: 70 MILLIGRAM FOR 3RD CYCLE...
     Route: 042

REACTIONS (1)
  - Administration site extravasation [Recovered/Resolved with Sequelae]
